FAERS Safety Report 19382012 (Version 1)
Quarter: 2021Q2

REPORT INFORMATION
  Report Type: Spontaneous
  Country: US (occurrence: US)
  Receive Date: 20210607
  Receipt Date: 20210607
  Transmission Date: 20210717
  Serious: Yes (Hospitalization)
  Sender: FDA-Public Use
  Company Number: US-AMNEAL PHARMACEUTICALS-2021-AMRX-02098

PATIENT
  Age: 27 Year
  Sex: Male

DRUGS (2)
  1. BACLOFEN. [Suspect]
     Active Substance: BACLOFEN
     Dosage: UNK, RE?STARTED
     Route: 048
  2. BACLOFEN. [Suspect]
     Active Substance: BACLOFEN
     Indication: PRODUCT USED FOR UNKNOWN INDICATION
     Dosage: UNK, INTENSIONAL INGESTION
     Route: 048

REACTIONS (4)
  - Toxic encephalopathy [Recovering/Resolving]
  - Withdrawal syndrome [Recovering/Resolving]
  - Catatonia [Recovering/Resolving]
  - Intentional overdose [Unknown]
